FAERS Safety Report 4884605-X (Version None)
Quarter: 2005Q4

REPORT INFORMATION
  Report Type: 
  Country: None (occurrence: None)
  Receive Date: 20051201
  Receipt Date: 20050921
  Transmission Date: 20060501
  Serious: No
  Sender: FDA-Public Use
  Company Number: 2005PV002340

PATIENT
  Age: 31 Year
  Sex: Female
  Weight: 141.0687 kg

DRUGS (4)
  1. BYETTA [Suspect]
     Indication: DIABETES MELLITUS NON-INSULIN-DEPENDENT
     Dosage: 5 MCG; BID; SC
     Route: 058
     Dates: start: 20050920
  2. AMARYL [Concomitant]
  3. ACTOS [Concomitant]
  4. LANTUS [Concomitant]

REACTIONS (7)
  - ARTHRALGIA [None]
  - CHEST PAIN [None]
  - FEELING HOT [None]
  - NECK PAIN [None]
  - PAIN IN EXTREMITY [None]
  - SALIVARY HYPERSECRETION [None]
  - SHOULDER PAIN [None]
